FAERS Safety Report 14657653 (Version 2)
Quarter: 2018Q1

REPORT INFORMATION
  Report Type: Spontaneous
  Country: JP (occurrence: JP)
  Receive Date: 20180320
  Receipt Date: 20180324
  Transmission Date: 20180509
  Serious: Yes (Life-Threatening, Other)
  Sender: FDA-Public Use
  Company Number: JP-ROCHE-1740017

PATIENT
  Age: 73 Year
  Sex: Male
  Weight: 67 kg

DRUGS (9)
  1. AVASTIN [Suspect]
     Active Substance: BEVACIZUMAB
     Indication: RECTAL CANCER
     Dosage: DOSAGE IS UNCERTAIN.
     Route: 041
     Dates: start: 20160120, end: 20160330
  2. ELPLAT [Concomitant]
     Active Substance: OXALIPLATIN
     Route: 065
     Dates: start: 20120104, end: 20121024
  3. 5-FU [Concomitant]
     Active Substance: FLUOROURACIL
     Indication: RECTAL CANCER
     Route: 041
     Dates: start: 20160120, end: 20160330
  4. 5-FU [Concomitant]
     Active Substance: FLUOROURACIL
     Route: 065
     Dates: start: 20120104, end: 20121024
  5. LEVOFOLINATE [Concomitant]
     Active Substance: LEVOLEUCOVORIN CALCIUM
     Route: 065
     Dates: start: 20120104, end: 20121024
  6. ELPLAT [Concomitant]
     Active Substance: OXALIPLATIN
     Indication: RECTAL CANCER
     Route: 041
     Dates: start: 20160120, end: 20160330
  7. CLINDAMYCIN. [Concomitant]
     Active Substance: CLINDAMYCIN
  8. 5-FU [Concomitant]
     Active Substance: FLUOROURACIL
     Indication: RECTAL CANCER
     Route: 040
     Dates: start: 20160120, end: 20160330
  9. LEVOFOLINATE [Concomitant]
     Active Substance: LEVOLEUCOVORIN CALCIUM
     Indication: RECTAL CANCER
     Route: 041
     Dates: start: 20160120, end: 20160330

REACTIONS (3)
  - Necrotising fasciitis [Recovering/Resolving]
  - Disseminated intravascular coagulation [Unknown]
  - Septic shock [Unknown]

NARRATIVE: CASE EVENT DATE: 20160403
